FAERS Safety Report 6247553-9 (Version None)
Quarter: 2009Q2

REPORT INFORMATION
  Report Type: 
  Country: None (occurrence: None)
  Receive Date: 20090626
  Receipt Date: 20090616
  Transmission Date: 20091009
  Serious: Yes (Other)
  Sender: FDA-Public Use
  Company Number: CH-GENENTECH-285446

PATIENT
  Age: 52 Year
  Sex: Female

DRUGS (2)
  1. AVASTIN [Suspect]
     Indication: BREAST CANCER
     Dosage: UNK
     Route: 065
     Dates: start: 20090201, end: 20090601
  2. PACLITAXEL [Concomitant]
     Indication: DRUG USE FOR UNKNOWN INDICATION
     Dosage: UNK
     Dates: start: 20090201, end: 20090601

REACTIONS (1)
  - GASTRIC ULCER [None]
